FAERS Safety Report 25089231 (Version 1)
Quarter: 2025Q1

REPORT INFORMATION
  Report Type: Spontaneous
  Country: US (occurrence: None)
  Receive Date: 20250317
  Receipt Date: 20250317
  Transmission Date: 20250408
  Serious: No
  Sender: FDA-CTU
  Company Number: None

PATIENT
  Age: 79 Year
  Sex: Male

DRUGS (1)
  1. CEFEPIME HYDROCHLORIDE [Suspect]
     Active Substance: CEFEPIME HYDROCHLORIDE
     Indication: Infection

REACTIONS (15)
  - Diverticulitis [None]
  - Large intestine infection [None]
  - Ischaemia [None]
  - Lethargy [None]
  - Confusional state [None]
  - Disorientation [None]
  - Dysphagia [None]
  - Somnolence [None]
  - Osteomyelitis [None]
  - Adverse drug reaction [None]
  - Abdominal infection [None]
  - Drug screen positive [None]
  - Blood cannabinoids [None]
  - Vitamin B12 decreased [None]
  - Gastrointestinal wall thickening [None]

NARRATIVE: CASE EVENT DATE: 20250210
